FAERS Safety Report 6347206-2 (Version None)
Quarter: 2009Q3

REPORT INFORMATION
  Report Type: 
  Country: None (occurrence: None)
  Receive Date: 20090910
  Receipt Date: 20090902
  Transmission Date: 20100115
  Serious: Yes (Hospitalization, Other)
  Sender: FDA-Public Use
  Company Number: PHHY2009BR37210

PATIENT
  Age: 81 Year
  Sex: Female
  Weight: 47.5 kg

DRUGS (8)
  1. EXELON [Suspect]
     Indication: NERVOUS SYSTEM DISORDER
     Dosage: 18MG/10CM2, 1 PATCH EVERY 24HRS
     Route: 062
     Dates: start: 20090201
  2. ACTONEL [Concomitant]
     Indication: OSTEOPOROSIS
  3. BONIVA [Concomitant]
     Indication: OSTEOPOROSIS
     Dosage: 1 INTRAMUSCULAR INJECTION EVERY 3 MONTHS
     Route: 030
     Dates: start: 20090701
  4. OMEPRAZOLE [Concomitant]
     Indication: ABDOMINAL DISCOMFORT
     Dosage: 1 TABLET IN THE MORNING
     Route: 048
  5. TRAZODONE [Concomitant]
     Indication: NERVOUS SYSTEM DISORDER
     Dosage: 50 MG, BID
     Route: 048
  6. MEMANTINE HCL [Concomitant]
     Indication: NERVOUS SYSTEM DISORDER
     Dosage: 10MG, HALF TABLET EVERY 12 HOURS
     Route: 048
  7. ASPIRIN [Concomitant]
     Indication: NERVOUS SYSTEM DISORDER
     Dosage: 100 MG, QD
     Route: 048
  8. CALCIUM AND VITAMIN D SUBSTANCES [Concomitant]
     Indication: OSTEOPOROSIS

REACTIONS (2)
  - LIMB OPERATION [None]
  - PNEUMONIA [None]
